FAERS Safety Report 13685291 (Version 1)
Quarter: 2017Q2

REPORT INFORMATION
  Report Type: Report from Study
  Country: CN (occurrence: CN)
  Receive Date: 20170623
  Receipt Date: 20170623
  Transmission Date: 20170830
  Serious: Yes (Hospitalization)
  Sender: FDA-Public Use
  Company Number: CN-GLAXOSMITHKLINE-CN2017GSK094102

PATIENT
  Age: 75 Year
  Sex: Female
  Weight: 60 kg

DRUGS (14)
  1. UMECLIDINIUM BR+VILANTEROL TRIFENATATE [Suspect]
     Active Substance: UMECLIDINIUM BROMIDE\VILANTEROL TRIFENATATE
     Indication: CHRONIC OBSTRUCTIVE PULMONARY DISEASE
     Dosage: 125/25 MCG, 1D
     Dates: start: 20121217, end: 20130529
  2. TIANDAN TONGLUO CAPSULE [Concomitant]
     Indication: CEREBROVASCULAR INSUFFICIENCY
     Dosage: 2 G, TID
     Route: 048
     Dates: start: 20130223
  3. CALCIUM CARBONATE. [Concomitant]
     Active Substance: CALCIUM CARBONATE
     Indication: OSTEOPOROSIS
     Dosage: 750 MG, QD
     Route: 048
     Dates: start: 20130216
  4. CINEPAZIDE MALEATE [Concomitant]
     Active Substance: CINEPAZIDE MALEATE
     Indication: CEREBROVASCULAR INSUFFICIENCY
     Dosage: 320 MG, QD
     Dates: start: 20130216, end: 20130223
  5. ALPROSTADIL. [Concomitant]
     Active Substance: ALPROSTADIL
     Indication: CEREBROVASCULAR INSUFFICIENCY
     Dosage: 10 MG, QD
     Dates: start: 20130216, end: 20130223
  6. THEOPHYLLINE [Concomitant]
     Active Substance: THEOPHYLLINE ANHYDROUS
     Indication: CHRONIC OBSTRUCTIVE PULMONARY DISEASE
     Dosage: 0.1 G, UNK
     Route: 048
     Dates: start: 20130217
  7. ASPIRIN. [Concomitant]
     Active Substance: ASPIRIN
     Indication: CEREBROVASCULAR INSUFFICIENCY
     Dosage: 100 MG, QD
     Route: 048
     Dates: start: 20130216
  8. AMLODIPINE BESILATE TABLET [Concomitant]
     Indication: HYPERTENSION
     Dosage: 5 MG, UNK
     Route: 048
     Dates: start: 20130219
  9. ATORVASTATIN CALCIUM. [Concomitant]
     Active Substance: ATORVASTATIN CALCIUM
     Indication: HYPERLIPIDAEMIA
     Dosage: 10 MG, QD
     Route: 048
     Dates: start: 2000
  10. CALCITRIOL. [Concomitant]
     Active Substance: CALCITRIOL
     Indication: OSTEOPOROSIS
     Dosage: 0.25 MG, QD
     Route: 048
     Dates: start: 20130216
  11. AROTINOLOL [Concomitant]
     Active Substance: AROTINOLOL
     Indication: HYPERTENSION
     Dosage: 10 MG, QD
     Route: 048
     Dates: start: 20130219
  12. IRBESARTAN HCT [Concomitant]
     Active Substance: HYDROCHLOROTHIAZIDE\IRBESARTAN
     Indication: HYPERTENSION
     Dosage: 162.5 MG, UNK
     Route: 048
     Dates: start: 20130216
  13. SHUXUENING [Concomitant]
     Active Substance: GINKGO
     Dosage: 20 UNK, UNK
     Dates: start: 20130216, end: 20130223
  14. DANHONG INJECTION [Concomitant]
     Indication: CEREBROVASCULAR INSUFFICIENCY
     Dosage: 40 ML, QD
     Dates: start: 20130216, end: 20130217

REACTIONS (1)
  - Hypertension [Recovered/Resolved]

NARRATIVE: CASE EVENT DATE: 20130216
